FAERS Safety Report 8056826 (Version 13)
Quarter: 2016Q2

REPORT INFORMATION
  Report Type: Report from Study
  Country: CA (occurrence: CA)
  Receive Date: 20110727
  Receipt Date: 20160621
  Transmission Date: 20160815
  Serious: Yes (Other)
  Sender: FDA-Public Use
  Company Number: PHHY2011CA64186

PATIENT
  Age: 59 Year
  Sex: Male

DRUGS (1)
  1. SANDOSTATIN LAR DEPOT [Suspect]
     Active Substance: OCTREOTIDE ACETATE
     Indication: ADENOMA BENIGN
     Dosage: 20 MG, QMO (EVERY 4 WEEKS)
     Route: 030
     Dates: start: 20060626

REACTIONS (18)
  - Influenza [Recovered/Resolved]
  - Rhinorrhoea [Recovered/Resolved]
  - Fall [Unknown]
  - Hypersensitivity [Unknown]
  - Localised infection [Unknown]
  - Wound [Unknown]
  - General physical condition abnormal [Unknown]
  - Depression [Unknown]
  - Hypotension [Unknown]
  - Myalgia [Recovered/Resolved]
  - Productive cough [Recovered/Resolved]
  - Laceration [Unknown]
  - Bloody discharge [Unknown]
  - Pyrexia [Recovered/Resolved]
  - Erythema [Unknown]
  - Body temperature decreased [Unknown]
  - Blood pressure increased [Unknown]
  - Product use issue [Unknown]

NARRATIVE: CASE EVENT DATE: 20131101
